FAERS Safety Report 24757681 (Version 1)
Quarter: 2024Q4

REPORT INFORMATION
  Report Type: Spontaneous
  Country: CA (occurrence: CA)
  Receive Date: 20241220
  Receipt Date: 20241220
  Transmission Date: 20250115
  Serious: Yes (Life-Threatening, Hospitalization)
  Sender: ABBVIE
  Company Number: CA-ABBVIE-6054971

PATIENT
  Age: 67 Year
  Sex: Female
  Weight: 69 kg

DRUGS (2)
  1. VENCLEXTA [Suspect]
     Active Substance: VENETOCLAX
     Indication: Acute myeloid leukaemia
     Dosage: THERAPY DURATION 18 DAYS
     Route: 048
  2. VIDAZA [Suspect]
     Active Substance: AZACITIDINE
     Indication: Acute myeloid leukaemia
     Dosage: POWDER FOR SUSPENSION SUBCUTANEOUS   THERAPY DURATION 6 DAYS
     Route: 042

REACTIONS (2)
  - Pancytopenia [Recovered/Resolved]
  - Febrile neutropenia [Recovered/Resolved]
